FAERS Safety Report 8485512-6 (Version None)
Quarter: 2012Q3

REPORT INFORMATION
  Report Type: 
  Country: None (occurrence: None)
  Receive Date: 20120703
  Receipt Date: 20120626
  Transmission Date: 20120928
  Serious: Yes (Hospitalization)
  Sender: FDA-Public Use
  Company Number: GB-PFIZER INC-2012153274

PATIENT
  Age: 56 Year
  Sex: Male
  Weight: 50 kg

DRUGS (13)
  1. ACETAMINOPHEN AND CODEINE PHOSPHATE [Concomitant]
  2. AMITRIPTYLINE HCL [Concomitant]
  3. LINEZOLID [Suspect]
     Indication: STAPHYLOCOCCAL INFECTION
     Dosage: 600 MG, 2X/DAY
     Route: 048
     Dates: start: 20120605, end: 20120607
  4. ACETYLSALICYLIC ACID [Concomitant]
  5. VANCOMYCIN HCL [Suspect]
     Indication: STAPHYLOCOCCAL INFECTION
     Dosage: UNK
     Route: 042
     Dates: start: 20120603, end: 20120605
  6. CALCICHEW-D3 [Concomitant]
  7. CLOPIDOGREL [Concomitant]
  8. ALENDRONATE SODIUM [Concomitant]
  9. ALFACALCIDOL [Concomitant]
  10. ENOXAPARIN [Concomitant]
  11. BISOPROLOL FUMARATE [Concomitant]
  12. SIMVASTATIN [Concomitant]
  13. CO-PHENOTROPE [Concomitant]

REACTIONS (2)
  - PANCYTOPENIA [None]
  - RENAL FAILURE ACUTE [None]
